FAERS Safety Report 7858606-3 (Version None)
Quarter: 2011Q4

REPORT INFORMATION
  Report Type: 
  Country: None (occurrence: None)
  Receive Date: 20111027
  Receipt Date: 20110131
  Transmission Date: 20120403
  Serious: Yes (Other)
  Sender: FDA-Public Use
  Company Number: US-BAYER-2011-011266

PATIENT
  Sex: Female

DRUGS (1)
  1. DROSPIRENONE AND ETHINYL ESTRADIOL [Suspect]
     Dosage: UNK
     Dates: start: 20070101, end: 20090101

REACTIONS (4)
  - GALLBLADDER DISORDER [None]
  - GALLBLADDER PAIN [None]
  - POST CHOLECYSTECTOMY SYNDROME [None]
  - GASTROINTESTINAL DISORDER [None]
